FAERS Safety Report 12373480 (Version 1)
Quarter: 2016Q2

REPORT INFORMATION
  Report Type: Spontaneous
  Country: GB (occurrence: GB)
  Receive Date: 20160516
  Receipt Date: 20160516
  Transmission Date: 20160815
  Serious: Yes (Other)
  Sender: FDA-Public Use
  Company Number: GB-BAUSCH-BL-2016-011422

PATIENT
  Age: 40 Year
  Sex: Male

DRUGS (4)
  1. PARACETAMOL [Concomitant]
     Active Substance: ACETAMINOPHEN
     Indication: PSORIATIC ARTHROPATHY
  2. CODEINE [Concomitant]
     Active Substance: CODEINE
     Indication: PSORIATIC ARTHROPATHY
  3. DEPOMEDRONE [Concomitant]
     Active Substance: METHYLPREDNISOLONE ACETATE
     Indication: JOINT EFFUSION
  4. DICLOFENAC [Suspect]
     Active Substance: DICLOFENAC
     Indication: PSORIATIC ARTHROPATHY
     Route: 065

REACTIONS (1)
  - Pseudoporphyria [Recovered/Resolved]
